FAERS Safety Report 8793728 (Version 2)
Quarter: 2012Q4

REPORT INFORMATION
  Report Type: Report from Study
  Country: US (occurrence: US)
  Receive Date: 20120918
  Receipt Date: 20121017
  Transmission Date: 20130627
  Serious: Yes (Hospitalization, Disabling, Other)
  Sender: FDA-Public Use
  Company Number: US-CELGENEUS-163-C5013-12073114

PATIENT
  Age: 61 Year
  Sex: Female
  Weight: 61.74 kg

DRUGS (19)
  1. CC-5013 [Suspect]
     Indication: CLL
     Dosage: Dose level -1
     Route: 048
     Dates: start: 20100104
  2. CC-5013 [Suspect]
     Route: 048
     Dates: start: 20120711, end: 20120725
  3. FLAGYL [Concomitant]
     Indication: COLITIS
     Route: 065
  4. CIPRO [Concomitant]
     Indication: URINARY TRACT INFECTION
     Route: 065
  5. NITROFURANTIN [Concomitant]
     Indication: URINARY TRACT INFECTION
     Route: 065
  6. OXYCODONE [Concomitant]
     Indication: DRUG USE FOR UNKNOWN INDICATION
     Dosage: 5 Milligram
     Route: 048
  7. ACIDOPHILUS [Concomitant]
     Indication: DRUG USE FOR UNKNOWN INDICATION
     Dosage: 4 Capsule
     Route: 048
  8. FLUTICASONE-SALMETEROL [Concomitant]
     Indication: DRUG USE FOR UNKNOWN INDICATION
     Dosage: 1 puff
     Route: 055
  9. METOCLOPRAMIDE [Concomitant]
     Indication: DRUG USE FOR UNKNOWN INDICATION
     Dosage: 30 Milligram
     Route: 048
  10. PANTOPRAZOLE [Concomitant]
     Indication: DRUG USE FOR UNKNOWN INDICATION
     Dosage: 40 Milligram
     Route: 048
  11. ENOXAPARIN [Concomitant]
     Indication: DRUG USE FOR UNKNOWN INDICATION
     Dosage: 30 Milligram
     Route: 058
  12. ACYCLOVIR [Concomitant]
     Indication: DRUG USE FOR UNKNOWN INDICATION
     Dosage: 800 Milligram
     Route: 048
  13. IOVERSOL [Concomitant]
     Indication: DRUG USE FOR UNKNOWN INDICATION
     Dosage: 125 milliliter
  14. AMLODIPINE [Concomitant]
     Indication: DRUG USE FOR UNKNOWN INDICATION
     Dosage: 5 Milligram
     Route: 048
  15. MESALAMINE [Concomitant]
     Indication: DRUG USE FOR UNKNOWN INDICATION
     Dosage: 1200 Milligram
     Route: 048
  16. ALLOPURINOL [Concomitant]
     Indication: DRUG USE FOR UNKNOWN INDICATION
     Dosage: 300 Milligram
     Route: 048
  17. NYSTATIN [Concomitant]
     Indication: DRUG USE FOR UNKNOWN INDICATION
     Dosage: 2000000 IU (International Unit)
     Route: 048
  18. POTASSIUM CHLORIDE [Concomitant]
     Indication: DRUG USE FOR UNKNOWN INDICATION
     Dosage: 20 mEq in sterile water
     Route: 041
  19. ANTIBIOTICS [Concomitant]
     Indication: DRUG USE FOR UNKNOWN INDICATION
     Route: 041

REACTIONS (4)
  - Systemic mycosis [Recovered/Resolved]
  - Skin exfoliation [Recovered/Resolved]
  - Colitis [Recovered/Resolved with Sequelae]
  - Diverticulitis [Recovered/Resolved with Sequelae]
